FAERS Safety Report 19979891 (Version 1)
Quarter: 2021Q4

REPORT INFORMATION
  Report Type: Spontaneous
  Country: US (occurrence: US)
  Receive Date: 20211021
  Receipt Date: 20211021
  Transmission Date: 20220303
  Serious: No
  Sender: FDA-Public Use
  Company Number: US-GLENMARK PHARMACEUTICALS-2021GMK053013

PATIENT

DRUGS (1)
  1. NITROGLYCERIN [Suspect]
     Active Substance: NITROGLYCERIN
     Indication: Hiatus hernia
     Dosage: UNK
     Route: 060

REACTIONS (2)
  - Product use in unapproved indication [Unknown]
  - Expired product administered [Unknown]
